FAERS Safety Report 6842079-3 (Version None)
Quarter: 2010Q3

REPORT INFORMATION
  Report Type: 
  Country: None (occurrence: None)
  Receive Date: 20100709
  Receipt Date: 20100705
  Transmission Date: 20110219
  Serious: Yes (Disabling, Other)
  Sender: FDA-Public Use
  Company Number: 2010AL003258

PATIENT
  Age: 64 Year
  Sex: Male

DRUGS (5)
  1. TRAMADOL HYDROCHLORIDE [Suspect]
  2. VFEND [Concomitant]
  3. CELEBREX [Concomitant]
  4. VFEND [Concomitant]
  5. KETOPROFEN [Concomitant]

REACTIONS (1)
  - FEELING ABNORMAL [None]
